FAERS Safety Report 7142197-9 (Version None)
Quarter: 2010Q4

REPORT INFORMATION
  Report Type: 
  Country: None (occurrence: None)
  Receive Date: 20101207
  Receipt Date: 20101203
  Transmission Date: 20110411
  Serious: No
  Sender: FDA-Public Use
  Company Number: US-PFIZER INC-2010164130

PATIENT
  Sex: Male

DRUGS (1)
  1. VIBRAMYCIN [Suspect]
     Indication: CHLAMYDIAL INFECTION
     Dosage: UNK

REACTIONS (1)
  - PENILE SWELLING [None]
